FAERS Safety Report 4680151-7 (Version None)
Quarter: 2005Q2

REPORT INFORMATION
  Report Type: 
  Country: None (occurrence: None)
  Receive Date: 20050602
  Receipt Date: 20040614
  Transmission Date: 20051028
  Serious: Yes (Other)
  Sender: FDA-Public Use
  Company Number: PHBS2004BE07993

PATIENT
  Age: 54 Year
  Sex: Female

DRUGS (7)
  1. 5-FU + EPIRUBICIN + CYCLOPHOSPHAMIDE [Concomitant]
     Dosage: 8 CYCLES
     Route: 065
     Dates: start: 20030207, end: 20030627
  2. RADIOTHERAPY [Concomitant]
     Dosage: (8 GY) AT D11-L2
     Route: 065
     Dates: start: 20030314
  3. IBUPROFEN [Concomitant]
     Route: 048
  4. TAMOXIFEN [Concomitant]
     Dosage: 20 MG/D
     Dates: start: 20030901
  5. HORMONES AND RELATED AGENTS [Concomitant]
  6. ZOMETA [Suspect]
     Indication: METASTASES TO BONE
     Dosage: 4 MG, QMO
     Route: 042
     Dates: start: 20030207, end: 20040612
  7. MS CONTIN [Concomitant]
     Dosage: 60 MG/D
     Route: 048

REACTIONS (6)
  - BONE DISORDER [None]
  - BONE LESION [None]
  - GINGIVAL HYPERPLASIA [None]
  - METAPLASIA [None]
  - MUCOSAL EROSION [None]
  - OSTEONECROSIS [None]
